FAERS Safety Report 17929101 (Version 6)
Quarter: 2021Q3

REPORT INFORMATION
  Report Type: Spontaneous
  Country: JP (occurrence: JP)
  Receive Date: 20200623
  Receipt Date: 20210927
  Transmission Date: 20211014
  Serious: Yes (Hospitalization, Other)
  Sender: FDA-Public Use
  Company Number: JP-ELI_LILLY_AND_COMPANY-JP202006007521

PATIENT
  Age: 43 Year
  Sex: Female
  Weight: 49 kg

DRUGS (32)
  1. UPTRAVI [Suspect]
     Active Substance: SELEXIPAG
     Indication: PULMONARY ARTERIAL HYPERTENSION
     Dosage: 0.4 MG, UNKNOWN
     Route: 048
     Dates: start: 20180131, end: 20180204
  2. UPTRAVI [Suspect]
     Active Substance: SELEXIPAG
     Dosage: 1 MG, UNKNOWN
     Route: 048
     Dates: start: 20180327, end: 20180424
  3. UPTRAVI [Suspect]
     Active Substance: SELEXIPAG
     Dosage: UNK
  4. CEFCAPENE PIVOXIL HYDROCHLORIDE [Concomitant]
     Active Substance: CEFCAPENE PIVOXIL HYDROCHLORIDE
     Indication: PRODUCT USED FOR UNKNOWN INDICATION
     Dosage: UNK
     Dates: start: 20190109
  5. LANSOPRAZOLE. [Concomitant]
     Active Substance: LANSOPRAZOLE
     Indication: PRODUCT USED FOR UNKNOWN INDICATION
     Dosage: 15 MG, DAILY
  6. REBAMIPIDE [Concomitant]
     Active Substance: REBAMIPIDE
     Indication: PRODUCT USED FOR UNKNOWN INDICATION
     Dosage: UNK
     Dates: start: 20180307, end: 20190129
  7. ADCIRCA [Suspect]
     Active Substance: TADALAFIL
     Indication: PULMONARY HYPERTENSION
  8. UPTRAVI [Suspect]
     Active Substance: SELEXIPAG
     Dosage: 1.2 MG, (0.3 MG X 4 TIMES PER DAY)
     Route: 048
     Dates: start: 20180425, end: 20180613
  9. UPTRAVI [Suspect]
     Active Substance: SELEXIPAG
     Dosage: 1.4 MG, UNKNOWN
     Route: 048
     Dates: start: 201809, end: 20181213
  10. UPTRAVI [Suspect]
     Active Substance: SELEXIPAG
     Dosage: UNK
  11. CELECOX [Concomitant]
     Active Substance: CELECOXIB
     Indication: ARTHRALGIA
     Dosage: UNK
     Dates: start: 20180813
  12. ADCIRCA [Suspect]
     Active Substance: TADALAFIL
     Indication: PULMONARY ARTERIAL HYPERTENSION
     Dosage: 40 MG, DAILY
     Route: 065
  13. UPTRAVI [Suspect]
     Active Substance: SELEXIPAG
     Dosage: 1.6 MG, UNKNOWN
     Route: 048
     Dates: start: 20180905, end: 201809
  14. FUROSEMIDE. [Concomitant]
     Active Substance: FUROSEMIDE
     Dosage: 20 MG, DAILY
     Dates: start: 20180801
  15. SPIRONOLACTONE. [Concomitant]
     Active Substance: SPIRONOLACTONE
     Dosage: 25 MG, DAILY
     Dates: start: 20180905
  16. CELECOX [Concomitant]
     Active Substance: CELECOXIB
     Dosage: UNK
     Dates: start: 20180815, end: 20180905
  17. MIYABM [Concomitant]
     Indication: PRODUCT USED FOR UNKNOWN INDICATION
     Dosage: 3 DOSAGE FORM, DAILY
     Dates: start: 201801, end: 20180306
  18. UPTRAVI [Suspect]
     Active Substance: SELEXIPAG
     Dosage: 0.8 MG, BID
     Route: 048
     Dates: start: 20180615, end: 20180904
  19. UPTRAVI [Suspect]
     Active Substance: SELEXIPAG
     Dosage: UNK
     Route: 048
     Dates: end: 20200127
  20. NEXIUM [Concomitant]
     Active Substance: ESOMEPRAZOLE MAGNESIUM
     Indication: PRODUCT USED FOR UNKNOWN INDICATION
     Dosage: 20 MG, DAILY
  21. ASPARA POTASSIUM [Concomitant]
     Active Substance: POTASSIUM ASPARTATE
     Indication: HYPOKALAEMIA
     Dosage: 300 MG, DAILY
     Dates: start: 201801, end: 20180725
  22. FUROSEMIDE. [Concomitant]
     Active Substance: FUROSEMIDE
     Indication: CARDIAC FAILURE
     Dosage: 40 MG, DAILY
     Dates: start: 201801, end: 20180731
  23. OPSUMIT [Concomitant]
     Active Substance: MACITENTAN
     Indication: PULMONARY ARTERIAL HYPERTENSION
     Dosage: 10 MG, DAILY
     Dates: start: 20160303
  24. LAC B [Concomitant]
     Active Substance: BIFIDOBACTERIUM SPP.
     Indication: CONSTIPATION
     Dosage: 3 G, DAILY
     Dates: start: 20180307, end: 20180321
  25. FERROUS CITRATE NA [Concomitant]
     Active Substance: SODIUM FERROUS CITRATE
     Dosage: 50 MG, DAILY
     Dates: start: 20180725, end: 20180801
  26. OPSUMIT [Concomitant]
     Active Substance: MACITENTAN
     Indication: PULMONARY ARTERIAL HYPERTENSION
  27. FERROUS CITRATE NA [Concomitant]
     Active Substance: SODIUM FERROUS CITRATE
     Dosage: 50 MG, DAILY
     Dates: start: 20180510, end: 20180530
  28. UPTRAVI [Suspect]
     Active Substance: SELEXIPAG
     Indication: PULMONARY HYPERTENSION
     Dosage: 0.8 MG, UNKNOWN
     Route: 048
     Dates: start: 20180205, end: 20180326
  29. UPTRAVI [Suspect]
     Active Substance: SELEXIPAG
     Dosage: 1.6 MG, UNKNOWN
     Route: 048
     Dates: start: 20181214
  30. SPIRONOLACTONE. [Concomitant]
     Active Substance: SPIRONOLACTONE
     Indication: CARDIAC FAILURE
     Dosage: 50 MG, DAILY
     Dates: start: 201801, end: 20180904
  31. LAC B [Concomitant]
     Active Substance: BIFIDOBACTERIUM SPP.
     Dosage: UNK
     Dates: start: 20180530
  32. FERROUS CITRATE NA [Concomitant]
     Active Substance: SODIUM FERROUS CITRATE
     Indication: IRON DEFICIENCY ANAEMIA
     Dosage: 100 MG, DAILY
     Dates: start: 20180425, end: 20180509

REACTIONS (19)
  - Pulmonary artery dilatation [Unknown]
  - Hypotension [Recovered/Resolved]
  - Headache [Recovering/Resolving]
  - Arrhythmia [Not Recovered/Not Resolved]
  - Chest pain [Recovering/Resolving]
  - Clubbing [Unknown]
  - Hypotension [Recovered/Resolved]
  - Cyanosis [Unknown]
  - Dental caries [Recovered/Resolved]
  - Pulmonary arterial pressure increased [Unknown]
  - Iron deficiency anaemia [Recovering/Resolving]
  - Haemoptysis [Recovered/Resolved]
  - Hypoxia [Unknown]
  - Right ventricular hypertrophy [Unknown]
  - Diarrhoea [Recovered/Resolved]
  - Sciatica [Recovering/Resolving]
  - Headache [Recovered/Resolved]
  - Hyperthyroidism [Recovered/Resolved]
  - Arthralgia [Recovering/Resolving]

NARRATIVE: CASE EVENT DATE: 20180307
